FAERS Safety Report 15329207 (Version 1)
Quarter: 2018Q3

REPORT INFORMATION
  Report Type: Spontaneous
  Country: US (occurrence: US)
  Receive Date: 20180823
  Receipt Date: 20180823
  Transmission Date: 20181010
  Serious: Yes (Hospitalization)
  Sender: FDA-Public Use
  Company Number: None

PATIENT
  Age: 47 Year
  Sex: Female

DRUGS (5)
  1. IBRANCE [Suspect]
     Active Substance: PALBOCICLIB
     Indication: BREAST CANCER FEMALE
     Dosage: 100MG :DAILY DAYS 1?21 Q 28 DAYS ORAL
     Route: 048
     Dates: start: 20170525
  2. TRAMADOL. [Concomitant]
     Active Substance: TRAMADOL
  3. FEMARA [Concomitant]
     Active Substance: LETROZOLE
  4. VITAMIN D [Concomitant]
     Active Substance: CHOLECALCIFEROL
  5. CALCIUM [Concomitant]
     Active Substance: CALCIUM

REACTIONS (2)
  - Jaw disorder [None]
  - Infection [None]

NARRATIVE: CASE EVENT DATE: 20180701
